FAERS Safety Report 6846370-6 (Version None)
Quarter: 2010Q3

REPORT INFORMATION
  Report Type: 
  Country: None (occurrence: None)
  Receive Date: 20100715
  Receipt Date: 20070918
  Transmission Date: 20110219
  Serious: No
  Sender: FDA-Public Use
  Company Number: US-PFIZER INC-2007078128

PATIENT
  Sex: Female
  Weight: 81.6 kg

DRUGS (1)
  1. CHANTIX [Suspect]
     Indication: SMOKING CESSATION THERAPY
     Route: 048
     Dates: start: 20070904, end: 20070915

REACTIONS (4)
  - DIZZINESS [None]
  - FEELING ABNORMAL [None]
  - ILL-DEFINED DISORDER [None]
  - ILLUSION [None]
